FAERS Safety Report 15679694 (Version 2)
Quarter: 2019Q1

REPORT INFORMATION
  Report Type: Spontaneous
  Country: US (occurrence: US)
  Receive Date: 20181203
  Receipt Date: 20190329
  Transmission Date: 20190417
  Serious: Yes (Disabling, Other)
  Sender: FDA-Public Use
  Company Number: US-PFIZER INC-2018489951

PATIENT
  Age: 74 Year
  Sex: Female
  Weight: 48.99 kg

DRUGS (2)
  1. IBRANCE [Suspect]
     Active Substance: PALBOCICLIB
     Indication: BREAST CANCER
     Dosage: 75 MG, CYCLIC (ONCE DAILY, IN THE EVENING WITH FOOD, ON FOR 21 DAYS, THEN OFF FOR 7)
     Route: 048
     Dates: start: 20181023
  2. LETROZOLE. [Suspect]
     Active Substance: LETROZOLE
     Indication: BREAST CANCER
     Dosage: 2.5 MG, 1X/DAY (IN THE EVENING WITH FOOD)
     Route: 048
     Dates: start: 20181023

REACTIONS (10)
  - Arthralgia [Recovered/Resolved]
  - Insomnia [Recovered/Resolved]
  - Vision blurred [Unknown]
  - Headache [Unknown]
  - Somnolence [Unknown]
  - Anxiety [Unknown]
  - C-reactive protein increased [Unknown]
  - White blood cell count abnormal [Unknown]
  - Genital disorder female [Unknown]
  - Red blood cell count abnormal [Unknown]

NARRATIVE: CASE EVENT DATE: 201811
